FAERS Safety Report 25577313 (Version 1)
Quarter: 2025Q3

REPORT INFORMATION
  Report Type: Spontaneous
  Country: GB (occurrence: GB)
  Receive Date: 20250718
  Receipt Date: 20250718
  Transmission Date: 20251020
  Serious: Yes (Disabling)
  Sender: MYLAN
  Company Number: GB-MHRA-TPP17108198C6098334YC1752485681370

PATIENT
  Age: 46 Year
  Sex: Female
  Weight: 74 kg

DRUGS (76)
  1. AMLODIPINE [Suspect]
     Active Substance: AMLODIPINE BESYLATE
     Indication: Ill-defined disorder
     Dosage: 1 DOSAGE FORM, QD (TAKE ONE DAILY)
     Dates: start: 20250402, end: 20250714
  2. AMLODIPINE [Suspect]
     Active Substance: AMLODIPINE BESYLATE
     Dosage: 1 DOSAGE FORM, QD (TAKE ONE DAILY)
     Route: 065
     Dates: start: 20250402, end: 20250714
  3. AMLODIPINE [Suspect]
     Active Substance: AMLODIPINE BESYLATE
     Dosage: 1 DOSAGE FORM, QD (TAKE ONE DAILY)
     Route: 065
     Dates: start: 20250402, end: 20250714
  4. AMLODIPINE [Suspect]
     Active Substance: AMLODIPINE BESYLATE
     Dosage: 1 DOSAGE FORM, QD (TAKE ONE DAILY)
     Dates: start: 20250402, end: 20250714
  5. LACTULOSE [Concomitant]
     Active Substance: LACTULOSE
     Indication: Ill-defined disorder
     Dosage: 10 MILLILITER, BID (TWICE DAILY)
     Dates: start: 20250620, end: 20250706
  6. LACTULOSE [Concomitant]
     Active Substance: LACTULOSE
     Dosage: 10 MILLILITER, BID (TWICE DAILY)
     Route: 065
     Dates: start: 20250620, end: 20250706
  7. LACTULOSE [Concomitant]
     Active Substance: LACTULOSE
     Dosage: 10 MILLILITER, BID (TWICE DAILY)
     Route: 065
     Dates: start: 20250620, end: 20250706
  8. LACTULOSE [Concomitant]
     Active Substance: LACTULOSE
     Dosage: 10 MILLILITER, BID (TWICE DAILY)
     Dates: start: 20250620, end: 20250706
  9. TRAMADOL [Concomitant]
     Active Substance: TRAMADOL
     Indication: Ill-defined disorder
     Dates: start: 20250626, end: 20250703
  10. TRAMADOL [Concomitant]
     Active Substance: TRAMADOL
     Indication: Analgesic therapy
     Route: 065
     Dates: start: 20250626, end: 20250703
  11. TRAMADOL [Concomitant]
     Active Substance: TRAMADOL
     Route: 065
     Dates: start: 20250626, end: 20250703
  12. TRAMADOL [Concomitant]
     Active Substance: TRAMADOL
     Dates: start: 20250626, end: 20250703
  13. TRANEXAMIC ACID [Concomitant]
     Active Substance: TRANEXAMIC ACID
     Indication: Ill-defined disorder
     Dosage: 2 DOSAGE FORM, TID (TAKE 2 TABLETS THREE TIMES A DAY)
     Dates: start: 20250606, end: 20250620
  14. TRANEXAMIC ACID [Concomitant]
     Active Substance: TRANEXAMIC ACID
     Dosage: 2 DOSAGE FORM, TID (TAKE 2 TABLETS THREE TIMES A DAY)
     Route: 065
     Dates: start: 20250606, end: 20250620
  15. TRANEXAMIC ACID [Concomitant]
     Active Substance: TRANEXAMIC ACID
     Dosage: 2 DOSAGE FORM, TID (TAKE 2 TABLETS THREE TIMES A DAY)
     Route: 065
     Dates: start: 20250606, end: 20250620
  16. TRANEXAMIC ACID [Concomitant]
     Active Substance: TRANEXAMIC ACID
     Dosage: 2 DOSAGE FORM, TID (TAKE 2 TABLETS THREE TIMES A DAY)
     Dates: start: 20250606, end: 20250620
  17. AMOXICILLIN [Concomitant]
     Active Substance: AMOXICILLIN
     Indication: Ill-defined disorder
     Dosage: 1 DOSAGE FORM, TID (TAKE ONE CAPSULE THREE TIMES A DAY FOR 5 DAYS)
     Dates: start: 20250612, end: 20250617
  18. AMOXICILLIN [Concomitant]
     Active Substance: AMOXICILLIN
     Dosage: 1 DOSAGE FORM, TID (TAKE ONE CAPSULE THREE TIMES A DAY FOR 5 DAYS)
     Route: 065
     Dates: start: 20250612, end: 20250617
  19. AMOXICILLIN [Concomitant]
     Active Substance: AMOXICILLIN
     Dosage: 1 DOSAGE FORM, TID (TAKE ONE CAPSULE THREE TIMES A DAY FOR 5 DAYS)
     Route: 065
     Dates: start: 20250612, end: 20250617
  20. AMOXICILLIN [Concomitant]
     Active Substance: AMOXICILLIN
     Dosage: 1 DOSAGE FORM, TID (TAKE ONE CAPSULE THREE TIMES A DAY FOR 5 DAYS)
     Dates: start: 20250612, end: 20250617
  21. PREDNISOLONE [Concomitant]
     Active Substance: PREDNISOLONE
     Indication: Ill-defined disorder
     Dosage: 8 DOSAGE FORM, QD (TAKE EIGHT TABLETS AS A SINGLE DOSE ONCEDAILY)
     Dates: start: 20250619, end: 20250624
  22. PREDNISOLONE [Concomitant]
     Active Substance: PREDNISOLONE
     Dosage: 8 DOSAGE FORM, QD (TAKE EIGHT TABLETS AS A SINGLE DOSE ONCEDAILY)
     Route: 065
     Dates: start: 20250619, end: 20250624
  23. PREDNISOLONE [Concomitant]
     Active Substance: PREDNISOLONE
     Dosage: 8 DOSAGE FORM, QD (TAKE EIGHT TABLETS AS A SINGLE DOSE ONCEDAILY)
     Route: 065
     Dates: start: 20250619, end: 20250624
  24. PREDNISOLONE [Concomitant]
     Active Substance: PREDNISOLONE
     Dosage: 8 DOSAGE FORM, QD (TAKE EIGHT TABLETS AS A SINGLE DOSE ONCEDAILY)
     Dates: start: 20250619, end: 20250624
  25. AMITRIPTYLINE HYDROCHLORIDE [Concomitant]
     Active Substance: AMITRIPTYLINE HYDROCHLORIDE
     Indication: Ill-defined disorder
     Dosage: 1 DOSAGE FORM, PM (TAKE ONE TABLET AT NIGHT FOR 3 DAYS AND THEN TA)
     Dates: start: 20250714
  26. AMITRIPTYLINE HYDROCHLORIDE [Concomitant]
     Active Substance: AMITRIPTYLINE HYDROCHLORIDE
     Dosage: 1 DOSAGE FORM, PM (TAKE ONE TABLET AT NIGHT FOR 3 DAYS AND THEN TA)
     Route: 065
     Dates: start: 20250714
  27. AMITRIPTYLINE HYDROCHLORIDE [Concomitant]
     Active Substance: AMITRIPTYLINE HYDROCHLORIDE
     Dosage: 1 DOSAGE FORM, PM (TAKE ONE TABLET AT NIGHT FOR 3 DAYS AND THEN TA)
     Route: 065
     Dates: start: 20250714
  28. AMITRIPTYLINE HYDROCHLORIDE [Concomitant]
     Active Substance: AMITRIPTYLINE HYDROCHLORIDE
     Dosage: 1 DOSAGE FORM, PM (TAKE ONE TABLET AT NIGHT FOR 3 DAYS AND THEN TA)
     Dates: start: 20250714
  29. INDAPAMIDE [Concomitant]
     Active Substance: INDAPAMIDE
     Indication: Ill-defined disorder
     Dosage: 1 DOSAGE FORM, AM (TAKE ONE TABLET EVERY MORNING)
     Dates: start: 20250714
  30. INDAPAMIDE [Concomitant]
     Active Substance: INDAPAMIDE
     Indication: Hypertension
     Dosage: 1 DOSAGE FORM, AM (TAKE ONE TABLET EVERY MORNING)
     Route: 065
     Dates: start: 20250714
  31. INDAPAMIDE [Concomitant]
     Active Substance: INDAPAMIDE
     Dosage: 1 DOSAGE FORM, AM (TAKE ONE TABLET EVERY MORNING)
     Route: 065
     Dates: start: 20250714
  32. INDAPAMIDE [Concomitant]
     Active Substance: INDAPAMIDE
     Dosage: 1 DOSAGE FORM, AM (TAKE ONE TABLET EVERY MORNING)
     Dates: start: 20250714
  33. CITALOPRAM [Concomitant]
     Active Substance: CITALOPRAM
     Indication: Ill-defined disorder
     Dosage: 1 DOSAGE FORM, QD (TAKE ONE DAILY)
     Dates: start: 20250402
  34. CITALOPRAM [Concomitant]
     Active Substance: CITALOPRAM
     Dosage: 1 DOSAGE FORM, QD (TAKE ONE DAILY)
     Route: 065
     Dates: start: 20250402
  35. CITALOPRAM [Concomitant]
     Active Substance: CITALOPRAM
     Dosage: 1 DOSAGE FORM, QD (TAKE ONE DAILY)
     Route: 065
     Dates: start: 20250402
  36. CITALOPRAM [Concomitant]
     Active Substance: CITALOPRAM
     Dosage: 1 DOSAGE FORM, QD (TAKE ONE DAILY)
     Dates: start: 20250402
  37. COCODAMOL [Concomitant]
     Active Substance: ACETAMINOPHEN\CODEINE PHOSPHATE
     Indication: Ill-defined disorder
     Dosage: UNK, QD (TAKE 1 OR 2 UPTO 4 TIMES/DAY)
     Dates: start: 20250402, end: 20250626
  38. COCODAMOL [Concomitant]
     Active Substance: ACETAMINOPHEN\CODEINE PHOSPHATE
     Dosage: UNK, QD (TAKE 1 OR 2 UPTO 4 TIMES/DAY)
     Route: 065
     Dates: start: 20250402, end: 20250626
  39. COCODAMOL [Concomitant]
     Active Substance: ACETAMINOPHEN\CODEINE PHOSPHATE
     Dosage: UNK, QD (TAKE 1 OR 2 UPTO 4 TIMES/DAY)
     Route: 065
     Dates: start: 20250402, end: 20250626
  40. COCODAMOL [Concomitant]
     Active Substance: ACETAMINOPHEN\CODEINE PHOSPHATE
     Dosage: UNK, QD (TAKE 1 OR 2 UPTO 4 TIMES/DAY)
     Dates: start: 20250402, end: 20250626
  41. ETORICOXIB [Concomitant]
     Active Substance: ETORICOXIB
     Indication: Ill-defined disorder
     Dosage: 1 DOSAGE FORM, QD (TAKE ONE ONCE DAILY)
     Dates: start: 20250402
  42. ETORICOXIB [Concomitant]
     Active Substance: ETORICOXIB
     Dosage: 1 DOSAGE FORM, QD (TAKE ONE ONCE DAILY)
     Route: 065
     Dates: start: 20250402
  43. ETORICOXIB [Concomitant]
     Active Substance: ETORICOXIB
     Dosage: 1 DOSAGE FORM, QD (TAKE ONE ONCE DAILY)
     Route: 065
     Dates: start: 20250402
  44. ETORICOXIB [Concomitant]
     Active Substance: ETORICOXIB
     Dosage: 1 DOSAGE FORM, QD (TAKE ONE ONCE DAILY)
     Dates: start: 20250402
  45. FEXOFENADINE [Concomitant]
     Active Substance: FEXOFENADINE HYDROCHLORIDE
     Indication: Ill-defined disorder
     Dosage: 1 DOSAGE FORM, QD (TAKE ONE ONCE DAILY)
     Dates: start: 20250402
  46. FEXOFENADINE [Concomitant]
     Active Substance: FEXOFENADINE HYDROCHLORIDE
     Dosage: 1 DOSAGE FORM, QD (TAKE ONE ONCE DAILY)
     Route: 065
     Dates: start: 20250402
  47. FEXOFENADINE [Concomitant]
     Active Substance: FEXOFENADINE HYDROCHLORIDE
     Dosage: 1 DOSAGE FORM, QD (TAKE ONE ONCE DAILY)
     Route: 065
     Dates: start: 20250402
  48. FEXOFENADINE [Concomitant]
     Active Substance: FEXOFENADINE HYDROCHLORIDE
     Dosage: 1 DOSAGE FORM, QD (TAKE ONE ONCE DAILY)
     Dates: start: 20250402
  49. POTASSIUM BICARBONATE\SODIUM ALGINATE [Concomitant]
     Active Substance: POTASSIUM BICARBONATE\SODIUM ALGINATE
     Indication: Ill-defined disorder
     Dosage: 10 MILLILITER, QID (4 TIMES/DAY)
     Dates: start: 20250402, end: 20250626
  50. POTASSIUM BICARBONATE\SODIUM ALGINATE [Concomitant]
     Active Substance: POTASSIUM BICARBONATE\SODIUM ALGINATE
     Dosage: 10 MILLILITER, QID (4 TIMES/DAY)
     Route: 065
     Dates: start: 20250402, end: 20250626
  51. POTASSIUM BICARBONATE\SODIUM ALGINATE [Concomitant]
     Active Substance: POTASSIUM BICARBONATE\SODIUM ALGINATE
     Dosage: 10 MILLILITER, QID (4 TIMES/DAY)
     Route: 065
     Dates: start: 20250402, end: 20250626
  52. POTASSIUM BICARBONATE\SODIUM ALGINATE [Concomitant]
     Active Substance: POTASSIUM BICARBONATE\SODIUM ALGINATE
     Dosage: 10 MILLILITER, QID (4 TIMES/DAY)
     Dates: start: 20250402, end: 20250626
  53. LANSOPRAZOLE [Concomitant]
     Active Substance: LANSOPRAZOLE
     Indication: Ill-defined disorder
     Dosage: 1 DOSAGE FORM, BID (TAKE ONE TWICE DAILY)
     Dates: start: 20250402
  54. LANSOPRAZOLE [Concomitant]
     Active Substance: LANSOPRAZOLE
     Dosage: 1 DOSAGE FORM, BID (TAKE ONE TWICE DAILY)
     Route: 065
     Dates: start: 20250402
  55. LANSOPRAZOLE [Concomitant]
     Active Substance: LANSOPRAZOLE
     Dosage: 1 DOSAGE FORM, BID (TAKE ONE TWICE DAILY)
     Route: 065
     Dates: start: 20250402
  56. LANSOPRAZOLE [Concomitant]
     Active Substance: LANSOPRAZOLE
     Dosage: 1 DOSAGE FORM, BID (TAKE ONE TWICE DAILY)
     Dates: start: 20250402
  57. PREGABALIN [Concomitant]
     Active Substance: PREGABALIN
     Indication: Ill-defined disorder
     Dosage: 2 DOSAGE FORM, BID (TAKE 2 TABLETS IN THE MORNING AND ONE IN AFTERNOON)
     Dates: start: 20250402, end: 20250714
  58. PREGABALIN [Concomitant]
     Active Substance: PREGABALIN
     Dosage: 2 DOSAGE FORM, BID (TAKE 2 TABLETS IN THE MORNING AND ONE IN AFTERNOON)
     Route: 065
     Dates: start: 20250402, end: 20250714
  59. PREGABALIN [Concomitant]
     Active Substance: PREGABALIN
     Dosage: 2 DOSAGE FORM, BID (TAKE 2 TABLETS IN THE MORNING AND ONE IN AFTERNOON)
     Route: 065
     Dates: start: 20250402, end: 20250714
  60. PREGABALIN [Concomitant]
     Active Substance: PREGABALIN
     Dosage: 2 DOSAGE FORM, BID (TAKE 2 TABLETS IN THE MORNING AND ONE IN AFTERNOON)
     Dates: start: 20250402, end: 20250714
  61. RAMIPRIL [Concomitant]
     Active Substance: RAMIPRIL
     Indication: Ill-defined disorder
     Dosage: 1 DOSAGE FORM, QD (TAKE ONE DAILY)
     Dates: start: 20250402
  62. RAMIPRIL [Concomitant]
     Active Substance: RAMIPRIL
     Dosage: 1 DOSAGE FORM, QD (TAKE ONE DAILY)
     Route: 065
     Dates: start: 20250402
  63. RAMIPRIL [Concomitant]
     Active Substance: RAMIPRIL
     Dosage: 1 DOSAGE FORM, QD (TAKE ONE DAILY)
     Route: 065
     Dates: start: 20250402
  64. RAMIPRIL [Concomitant]
     Active Substance: RAMIPRIL
     Dosage: 1 DOSAGE FORM, QD (TAKE ONE DAILY)
     Dates: start: 20250402
  65. ALBUTEROL [Concomitant]
     Active Substance: ALBUTEROL
     Indication: Ill-defined disorder
  66. ALBUTEROL [Concomitant]
     Active Substance: ALBUTEROL
     Route: 055
  67. ALBUTEROL [Concomitant]
     Active Substance: ALBUTEROL
     Route: 055
  68. ALBUTEROL [Concomitant]
     Active Substance: ALBUTEROL
  69. BECLOMETHASONE DIPROPIONATE\FORMOTEROL FUMARATE\GLYCOPYRROLATE [Concomitant]
     Active Substance: BECLOMETHASONE DIPROPIONATE\FORMOTEROL FUMARATE\GLYCOPYRROLATE
     Indication: Ill-defined disorder
     Dosage: 2 DOSAGE FORM, BID (TWO PUFFS TWICE DAILY (PLEASE RETURN YOUR EMPTY)
     Dates: start: 20250402
  70. BECLOMETHASONE DIPROPIONATE\FORMOTEROL FUMARATE\GLYCOPYRROLATE [Concomitant]
     Active Substance: BECLOMETHASONE DIPROPIONATE\FORMOTEROL FUMARATE\GLYCOPYRROLATE
     Dosage: 2 DOSAGE FORM, BID (TWO PUFFS TWICE DAILY (PLEASE RETURN YOUR EMPTY)
     Route: 065
     Dates: start: 20250402
  71. BECLOMETHASONE DIPROPIONATE\FORMOTEROL FUMARATE\GLYCOPYRROLATE [Concomitant]
     Active Substance: BECLOMETHASONE DIPROPIONATE\FORMOTEROL FUMARATE\GLYCOPYRROLATE
     Dosage: 2 DOSAGE FORM, BID (TWO PUFFS TWICE DAILY (PLEASE RETURN YOUR EMPTY)
     Route: 065
     Dates: start: 20250402
  72. BECLOMETHASONE DIPROPIONATE\FORMOTEROL FUMARATE\GLYCOPYRROLATE [Concomitant]
     Active Substance: BECLOMETHASONE DIPROPIONATE\FORMOTEROL FUMARATE\GLYCOPYRROLATE
     Dosage: 2 DOSAGE FORM, BID (TWO PUFFS TWICE DAILY (PLEASE RETURN YOUR EMPTY)
     Dates: start: 20250402
  73. GAVISCON [Concomitant]
     Active Substance: ALUMINUM HYDROXIDE\MAGNESIUM CARBONATE
     Indication: Ill-defined disorder
  74. GAVISCON [Concomitant]
     Active Substance: ALUMINUM HYDROXIDE\MAGNESIUM CARBONATE
     Route: 065
  75. GAVISCON [Concomitant]
     Active Substance: ALUMINUM HYDROXIDE\MAGNESIUM CARBONATE
     Route: 065
  76. GAVISCON [Concomitant]
     Active Substance: ALUMINUM HYDROXIDE\MAGNESIUM CARBONATE

REACTIONS (2)
  - Swelling [Unknown]
  - Mobility decreased [Unknown]
